FAERS Safety Report 8081246-0 (Version None)
Quarter: 2012Q1

REPORT INFORMATION
  Report Type: 
  Country: None (occurrence: None)
  Receive Date: 20120130
  Receipt Date: 20120123
  Transmission Date: 20120608
  Serious: Yes (Other)
  Sender: FDA-Public Use
  Company Number: US-US-EMD SERONO, INC.-7109008

PATIENT
  Sex: Male

DRUGS (1)
  1. REBIF [Suspect]
     Indication: PRODUCT USED FOR UNKNOWN INDICATION
     Route: 058
     Dates: start: 20111209

REACTIONS (4)
  - PALPITATIONS [None]
  - INJECTION SITE HAEMATOMA [None]
  - BLINDNESS [None]
  - INFLUENZA LIKE ILLNESS [None]
